FAERS Safety Report 6579761-1 (Version None)
Quarter: 2010Q1

REPORT INFORMATION
  Report Type: 
  Country: None (occurrence: None)
  Receive Date: 20100212
  Receipt Date: 20100209
  Transmission Date: 20100710
  Serious: Yes (Hospitalization)
  Sender: FDA-Public Use
  Company Number: A0843992A

PATIENT
  Sex: Female
  Weight: 65 kg

DRUGS (1)
  1. AEROLIN [Suspect]
     Indication: BRONCHITIS
     Route: 065
     Dates: start: 19970101

REACTIONS (6)
  - CHEST PAIN [None]
  - DRUG INEFFECTIVE [None]
  - DYSPNOEA [None]
  - INAPPROPRIATE SCHEDULE OF DRUG ADMINISTRATION [None]
  - LABILE BLOOD PRESSURE [None]
  - OVERDOSE [None]
